FAERS Safety Report 7329756-5 (Version None)
Quarter: 2011Q1

REPORT INFORMATION
  Report Type: 
  Country: None (occurrence: None)
  Receive Date: 20110303
  Receipt Date: 20110228
  Transmission Date: 20110831
  Serious: Yes (Other)
  Sender: FDA-Public Use
  Company Number: GB-PFIZER INC-2011043910

PATIENT
  Age: 41 Year
  Sex: Female

DRUGS (1)
  1. CHAMPIX [Suspect]
     Indication: SMOKING CESSATION THERAPY
     Dosage: UNK
     Dates: start: 20101228, end: 20110125

REACTIONS (6)
  - SALIVARY HYPERSECRETION [None]
  - DRY MOUTH [None]
  - MOUTH ULCERATION [None]
  - SWELLING FACE [None]
  - HEADACHE [None]
  - TONSILLAR ULCER [None]
